FAERS Safety Report 23944791 (Version 4)
Quarter: 2024Q3

REPORT INFORMATION
  Report Type: Report from Study
  Country: IN (occurrence: IN)
  Receive Date: 20240606
  Receipt Date: 20240819
  Transmission Date: 20241017
  Serious: Yes (Death, Hospitalization)
  Sender: ROCHE
  Company Number: IN-ROCHE-3572745

PATIENT
  Age: 61 Year
  Sex: Male

DRUGS (2)
  1. TECENTRIQ [Suspect]
     Active Substance: ATEZOLIZUMAB
     Indication: Hepatocellular carcinoma
     Route: 041
     Dates: start: 20240504
  2. AVASTIN [Suspect]
     Active Substance: BEVACIZUMAB
     Indication: Hepatocellular carcinoma
     Route: 042
     Dates: start: 20240504

REACTIONS (5)
  - Oedema [Unknown]
  - Blood bilirubin increased [Unknown]
  - Fatigue [Unknown]
  - Haemorrhoids [Unknown]
  - Death [Fatal]

NARRATIVE: CASE EVENT DATE: 20240713
